FAERS Safety Report 4506730-5 (Version None)
Quarter: 2004Q4

REPORT INFORMATION
  Report Type: 
  Country: None (occurrence: None)
  Receive Date: 20041117
  Receipt Date: 20041102
  Transmission Date: 20050328
  Serious: Yes (Hospitalization, Other)
  Sender: FDA-Public Use
  Company Number: 2004US001346

PATIENT
  Age: 67 Year
  Sex: Male

DRUGS (5)
  1. PROGRAF [Suspect]
     Indication: HEART TRANSPLANT
     Dosage: 1.00 MG, BID
  2. RAPAMYCIN (SIROLIMUS) [Suspect]
     Dosage: 2.00 MG, UID/QD
  3. PREDNISONE [Suspect]
     Dosage: 7.50 MG, UID/QD
  4. VALGANCICLOVIR (VALGANCICLOVIR) [Suspect]
     Dosage: 450.00 MG, BID
  5. ATOVAQUONE [Suspect]
     Dosage: 750.00 MG, UID/QD

REACTIONS (6)
  - CARDIAC FAILURE CONGESTIVE [None]
  - LETHARGY [None]
  - PNEUMOCYSTIS CARINII PNEUMONIA [None]
  - POST PROCEDURAL COMPLICATION [None]
  - RENAL IMPAIRMENT [None]
  - WEIGHT DECREASED [None]
